FAERS Safety Report 17795744 (Version 3)
Quarter: 2020Q3

REPORT INFORMATION
  Report Type: Report from Study
  Country: IN (occurrence: IN)
  Receive Date: 20200516
  Receipt Date: 20200616
  Transmission Date: 20201104
  Serious: Yes (Hospitalization)
  Sender: FDA-Public Use
  Company Number: NVSC2019IN035218

PATIENT
  Age: 49 Year
  Sex: Male
  Weight: 75 kg

DRUGS (7)
  1. GALVUS MET [Suspect]
     Active Substance: METFORMIN HYDROCHLORIDE\VILDAGLIPTIN
     Dosage: UNK
     Route: 048
     Dates: start: 20190211
  2. GEMER [Concomitant]
     Active Substance: GLIMEPIRIDE\METFORMIN
     Indication: PRODUCT USED FOR UNKNOWN INDICATION
     Dosage: 1 DF, QD (1?0?0)
     Route: 048
  3. GALVUS MET [Suspect]
     Active Substance: METFORMIN HYDROCHLORIDE\VILDAGLIPTIN
     Dosage: UNK (HALF TABLET)
     Route: 048
     Dates: start: 20200316
  4. TSART H [Concomitant]
     Indication: PRODUCT USED FOR UNKNOWN INDICATION
     Dosage: 1 DF, QD (1?0?0)
     Route: 048
  5. GALVUS MET [Suspect]
     Active Substance: METFORMIN HYDROCHLORIDE\VILDAGLIPTIN
     Indication: DIABETES MELLITUS
     Dosage: 1 DF (METFORMIN 500MG, VILDAGLIPTIN 50MG), QD (0?0?1)
     Route: 048
     Dates: start: 20191102, end: 20191108
  6. GALVUS MET [Suspect]
     Active Substance: METFORMIN HYDROCHLORIDE\VILDAGLIPTIN
     Dosage: UNK (REDUCED DOSE)
     Route: 048
     Dates: start: 20191111
  7. GALVUS [Suspect]
     Active Substance: VILDAGLIPTIN
     Indication: PRODUCT USED FOR UNKNOWN INDICATION
     Dosage: 50 MG
     Route: 065
     Dates: start: 20191102

REACTIONS (28)
  - Diarrhoea [Unknown]
  - Anxiety [Unknown]
  - Food poisoning [Recovered/Resolved]
  - Urine albumin/creatinine ratio [Unknown]
  - Somnolence [Unknown]
  - Red blood cells urine [Unknown]
  - Spinal osteoarthritis [Not Recovered/Not Resolved]
  - Blood glucose decreased [Unknown]
  - Concomitant disease aggravated [Unknown]
  - Heart rate increased [Unknown]
  - Wrong technique in product usage process [Unknown]
  - Blood urea increased [Unknown]
  - Hypertension [Unknown]
  - Fatigue [Unknown]
  - Increased appetite [Unknown]
  - Asthenia [Unknown]
  - Discomfort [Not Recovered/Not Resolved]
  - Insomnia [Not Recovered/Not Resolved]
  - Hyperhidrosis [Unknown]
  - Proteinuria [Unknown]
  - Chills [Unknown]
  - Vomiting [Unknown]
  - Asthenia [Recovered/Resolved]
  - Hyperglycaemia [Unknown]
  - Blood pressure increased [Unknown]
  - Obesity [Unknown]
  - Hyperglycaemia [Unknown]
  - Hyperglycaemia [Unknown]

NARRATIVE: CASE EVENT DATE: 20191108
